FAERS Safety Report 12993962 (Version 1)
Quarter: 2016Q4

REPORT INFORMATION
  Report Type: Spontaneous
  Country: US (occurrence: US)
  Receive Date: 20161201
  Receipt Date: 20161201
  Transmission Date: 20170207
  Serious: Yes (Hospitalization)
  Sender: FDA-Public Use
  Company Number: None

PATIENT
  Age: 45 Year
  Sex: Female
  Weight: 92.5 kg

DRUGS (2)
  1. CEFTAROLINE [Suspect]
     Active Substance: CEFTAROLINE
     Indication: STAPHYLOCOCCAL INFECTION
     Route: 042
  2. CEFTAROLINE [Suspect]
     Active Substance: CEFTAROLINE
     Indication: OTITIS MEDIA
     Route: 042

REACTIONS (8)
  - Myalgia [None]
  - Chills [None]
  - Diarrhoea [None]
  - Pyrexia [None]
  - Headache [None]
  - Platelet count decreased [None]
  - Nausea [None]
  - CSF white blood cell count decreased [None]

NARRATIVE: CASE EVENT DATE: 20161129
